FAERS Safety Report 15902869 (Version 1)
Quarter: 2019Q1

REPORT INFORMATION
  Report Type: Spontaneous
  Country: DE (occurrence: DE)
  Receive Date: 20190202
  Receipt Date: 20190202
  Transmission Date: 20190417
  Serious: Yes (Congenital Anomaly)
  Sender: FDA-Public Use
  Company Number: DE-ACCORD-104411

PATIENT
  Age: 1 Day
  Sex: Male
  Weight: 3.33 kg

DRUGS (3)
  1. QUETIAPINE/QUETIAPINE FUMARATE [Concomitant]
     Indication: ANXIETY DISORDER
     Dosage: 25 MG/D
     Route: 064
  2. ESCITALOPRAM [Suspect]
     Active Substance: ESCITALOPRAM OXALATE
     Indication: DEPRESSION
     Dosage: 10 MG/D
     Route: 064
  3. SERTRALINE [Concomitant]
     Active Substance: SERTRALINE HYDROCHLORIDE
     Indication: DEPRESSION
     Dosage: 150 MG/D
     Route: 064

REACTIONS (3)
  - Atrial septal defect [Recovered/Resolved]
  - Foetal exposure during pregnancy [Unknown]
  - Pulmonary artery stenosis congenital [Not Recovered/Not Resolved]

NARRATIVE: CASE EVENT DATE: 20171105
